FAERS Safety Report 21196681 (Version 1)
Quarter: 2022Q3

REPORT INFORMATION
  Report Type: Spontaneous
  Country: GB (occurrence: GB)
  Receive Date: 20220810
  Receipt Date: 20220810
  Transmission Date: 20221027
  Serious: Yes (Other)
  Sender: FDA-Public Use
  Company Number: GB-JAZZ-2021-GB-017112

PATIENT

DRUGS (1)
  1. VYXEOS [Suspect]
     Active Substance: CYTARABINE\DAUNORUBICIN
     Indication: Acute myeloid leukaemia
     Dosage: UNKNOWN DOSE DURING INDUCTION
     Route: 042

REACTIONS (4)
  - Thrombocytopenia [Unknown]
  - Febrile bone marrow aplasia [Unknown]
  - Anaemia [Unknown]
  - Nausea [Unknown]
